FAERS Safety Report 4710282-4 (Version None)
Quarter: 2005Q3

REPORT INFORMATION
  Report Type: 
  Country: None (occurrence: None)
  Receive Date: 20050711
  Receipt Date: 20050629
  Transmission Date: 20060218
  Serious: Yes (Death, Life-Threatening, Other)
  Sender: FDA-Public Use
  Company Number: GB-JNJFOC-20050502388

PATIENT
  Sex: Female
  Weight: 44 kg

DRUGS (7)
  1. REMICADE [Suspect]
     Indication: RHEUMATOID ARTHRITIS
     Route: 042
  2. METHOTREXATE [Concomitant]
     Route: 065
  3. FOLIC ACID [Concomitant]
     Route: 065
  4. THYROXINE [Concomitant]
     Route: 065
  5. RELIFLEX [Concomitant]
     Route: 065
  6. ATENOLOL [Concomitant]
     Route: 065
  7. ACETAMINOPHEN [Concomitant]
     Route: 065

REACTIONS (4)
  - FALL [None]
  - FEMORAL NECK FRACTURE [None]
  - PERITONITIS [None]
  - SMALL INTESTINAL OBSTRUCTION [None]
